FAERS Safety Report 7392573-4 (Version None)
Quarter: 2011Q1

REPORT INFORMATION
  Report Type: 
  Country: None (occurrence: None)
  Receive Date: 20110324
  Receipt Date: 20110315
  Transmission Date: 20110831
  Serious: Yes (Death)
  Sender: FDA-Public Use
  Company Number: 2011MA002455

PATIENT
  Age: 42 Year
  Sex: Female

DRUGS (2)
  1. ESCITALOPRAM [Concomitant]
  2. CYPROHEPTADINE HYDROCHLORIDE [Suspect]

REACTIONS (3)
  - OVERDOSE [None]
  - ARRHYTHMIA [None]
  - TOXICITY TO VARIOUS AGENTS [None]
